FAERS Safety Report 10388932 (Version 1)
Quarter: 2014Q1

REPORT INFORMATION
  Report Type: Spontaneous
  Country: US (occurrence: None)
  Receive Date: 20140306
  Receipt Date: 20140306
  Transmission Date: 20141002
  Serious: Yes (Other)
  Sender: FDA-Public Use
  Company Number: 163-21880-13021291

PATIENT
  Age: 76 Year
  Sex: Female

DRUGS (3)
  1. REVLIMID (LENALIDOMIDE) (CAPSULES) [Suspect]
     Indication: PLASMA CELL MYELOMA
     Dosage: 15 MG, 21 IN 21 D, PO
     Route: 048
     Dates: start: 20121015
  2. ASA (ACETYLSALICYLIC ACID) [Concomitant]
  3. DECADRON (DEXAMETHASONE) [Concomitant]

REACTIONS (3)
  - Neutrophil count decreased [None]
  - Platelet count decreased [None]
  - White blood cell count decreased [None]
